FAERS Safety Report 7911195-7 (Version None)
Quarter: 2011Q4

REPORT INFORMATION
  Report Type: 
  Country: None (occurrence: None)
  Receive Date: 20111109
  Receipt Date: 20111026
  Transmission Date: 20120403
  Serious: Yes (Other)
  Sender: FDA-Public Use
  Company Number: JP-2011-11568

PATIENT
  Age: 84 Year
  Sex: Male
  Weight: 60 kg

DRUGS (13)
  1. PLETAL [Suspect]
     Indication: ARTERIOSCLEROSIS OBLITERANS
     Dosage: 100 MG MILLIGRAM(S) BID, ORAL
     Route: 048
     Dates: start: 20110425, end: 20110805
  2. AMLODIN OD (AMLODIPINE BESILATE) [Concomitant]
  3. OXAROL (MAXACALCITOL) [Concomitant]
  4. FOSRENOL (LANTHANUM CARBONATE HYDRATE) [Concomitant]
  5. NESP (DARBEPOETIN) INJECTION [Concomitant]
  6. CINAL (ASCORBIC ACID, CALCIUM PANTOTHENATE) [Concomitant]
  7. MICARDIS [Concomitant]
  8. EPOGIN INJ. 1500,3000 (EPOETIN BETA) INJECTION [Suspect]
     Indication: NEPHROGENIC ANAEMIA
     Dosage: 3000 IU, TID, INTRAVENOUS ; 1500,3000 3000 IU, TID, INTRAVENOUS
     Route: 042
     Dates: start: 20110916
  9. EPOGIN INJ. 1500,3000 (EPOETIN BETA) INJECTION [Suspect]
     Indication: NEPHROGENIC ANAEMIA
     Dosage: 3000 IU, TID, INTRAVENOUS ; 1500,3000 3000 IU, TID, INTRAVENOUS
     Route: 042
     Dates: end: 20110629
  10. LANSOPRAZOLE [Suspect]
     Indication: GASTRIC ULCER
     Dosage: 30 MG MILLIGRAM(S), QD, ORAL ; 15 MG MILLIGRAM(S), QD, ORAL
     Route: 048
     Dates: end: 20110808
  11. LANSOPRAZOLE [Suspect]
     Indication: GASTRIC ULCER
     Dosage: 30 MG MILLIGRAM(S), QD, ORAL ; 15 MG MILLIGRAM(S), QD, ORAL
     Route: 048
     Dates: start: 20110907
  12. PROMAC (POLAPREZINC) [Concomitant]
  13. SODIUM ALGINATE CALCIUM GLUCONATE INJ [Concomitant]

REACTIONS (5)
  - APLASIA PURE RED CELL [None]
  - MYELODYSPLASTIC SYNDROME [None]
  - DUODENAL ULCER HAEMORRHAGE [None]
  - ANTI-ERYTHROPOIETIN ANTIBODY POSITIVE [None]
  - GASTROINTESTINAL HAEMORRHAGE [None]
